FAERS Safety Report 11809116 (Version 1)
Quarter: 2015Q4

REPORT INFORMATION
  Report Type: Spontaneous
  Country: JP (occurrence: JP)
  Receive Date: 20151207
  Receipt Date: 20151207
  Transmission Date: 20160305
  Serious: Yes (Death, Other)
  Sender: FDA-Public Use
  Company Number: JP-GILEAD-2015-0185424

PATIENT
  Age: 79 Year
  Sex: Female

DRUGS (6)
  1. KARY UNI                           /00528801/ [Concomitant]
     Active Substance: PIRENOXINE
     Dosage: UNK
     Route: 047
  2. HARVONI [Suspect]
     Active Substance: LEDIPASVIR\SOFOSBUVIR
     Indication: CHRONIC HEPATITIS C
     Dosage: 1 DF, UNK
     Route: 048
     Dates: start: 20150915
  3. ACECOL                             /01140001/ [Concomitant]
     Dosage: UNK
     Route: 048
  4. AROTINOLOL [Concomitant]
     Active Substance: AROTINOLOL
     Dosage: UNK
     Route: 048
  5. DIQUAS [Concomitant]
     Active Substance: DIQUAFOSOL TETRASODIUM
     Dosage: UNK
     Route: 047
  6. NORVASC [Concomitant]
     Active Substance: AMLODIPINE BESYLATE
     Dosage: UNK
     Route: 048

REACTIONS (1)
  - Aortic dissection [Fatal]

NARRATIVE: CASE EVENT DATE: 20151129
